FAERS Safety Report 26045113 (Version 2)
Quarter: 2025Q4

REPORT INFORMATION
  Report Type: Spontaneous
  Country: CN (occurrence: CN)
  Receive Date: 20251114
  Receipt Date: 20251128
  Transmission Date: 20260117
  Serious: Yes (Hospitalization, Other)
  Sender: ALKEM
  Company Number: None

PATIENT
  Age: 62 Year
  Sex: Male

DRUGS (9)
  1. MYCOPHENOLATE MOFETIL [Suspect]
     Active Substance: MYCOPHENOLATE MOFETIL
     Indication: Immunosuppressant drug therapy
     Dosage: UNK
     Route: 065
  2. MYCOPHENOLATE MOFETIL [Suspect]
     Active Substance: MYCOPHENOLATE MOFETIL
     Indication: Prophylaxis against transplant rejection
  3. TACROLIMUS [Suspect]
     Active Substance: TACROLIMUS
     Indication: Immunosuppressant drug therapy
     Dosage: UNK
     Route: 065
  4. TACROLIMUS [Suspect]
     Active Substance: TACROLIMUS
     Indication: Prophylaxis against transplant rejection
  5. BEVACIZUMAB [Suspect]
     Active Substance: BEVACIZUMAB
     Indication: Small intestine adenocarcinoma
     Dosage: 500-700 MILLIGRAM IVGTT Q21DAYS)
     Route: 042
  6. BEVACIZUMAB [Suspect]
     Active Substance: BEVACIZUMAB
     Indication: Metastases to abdominal cavity
     Dosage: UNK (MONOTHERAPY CONTINUED)
     Route: 065
  7. BEVACIZUMAB [Suspect]
     Active Substance: BEVACIZUMAB
     Indication: Metastases to pelvis
  8. BENIDIPINE [Concomitant]
     Active Substance: BENIDIPINE
     Indication: Hypertension
     Dosage: UNK
     Route: 048
  9. Chlorosartan [Concomitant]
     Indication: Hypertension
     Dosage: UNK
     Route: 048

REACTIONS (5)
  - Metastases to pelvis [Recovered/Resolved]
  - Small intestine adenocarcinoma [Recovered/Resolved]
  - Metastases to abdominal cavity [Recovered/Resolved]
  - Focal segmental glomerulosclerosis [Unknown]
  - Renal-limited thrombotic microangiopathy [Unknown]
